FAERS Safety Report 4884807-2 (Version None)
Quarter: 2005Q4

REPORT INFORMATION
  Report Type: 
  Country: None (occurrence: None)
  Receive Date: 20051201
  Receipt Date: 20050919
  Transmission Date: 20060501
  Serious: No
  Sender: FDA-Public Use
  Company Number: 2005PV002270

PATIENT
  Age: 67 Year
  Sex: Female
  Weight: 81.6475 kg

DRUGS (11)
  1. BYETTA [Suspect]
     Indication: DIABETES MELLITUS NON-INSULIN-DEPENDENT
     Dosage: 10  MCG; BID; SC; 5 MCG; SC
     Route: 058
     Dates: start: 20050710, end: 20050820
  2. BYETTA [Suspect]
     Indication: DIABETES MELLITUS NON-INSULIN-DEPENDENT
     Dosage: 10  MCG; BID; SC; 5 MCG; SC
     Route: 058
     Dates: start: 20050821, end: 20050917
  3. HUMALOG [Concomitant]
  4. METFORMIN HCL [Concomitant]
  5. AVANDAMET [Concomitant]
  6. AMARYL [Concomitant]
  7. PLAVIX [Concomitant]
  8. BENICAR HCT [Concomitant]
  9. COREG [Concomitant]
  10. CLONIDINE [Concomitant]
  11. MONOPRIL [Concomitant]

REACTIONS (9)
  - BLOOD GLUCOSE DECREASED [None]
  - CONSTIPATION [None]
  - DECREASED APPETITE [None]
  - DYSGEUSIA [None]
  - DYSPEPSIA [None]
  - GLOSSODYNIA [None]
  - RETCHING [None]
  - VOMITING [None]
  - WEIGHT DECREASED [None]
